FAERS Safety Report 7412313 (Version 2)
Quarter: 2012Q4

REPORT INFORMATION
  Report Type: 
  Country: US (occurrence: US)
  Receive Date: 20100607
  Receipt Date: 20120924
  Transmission Date: 20130627
  Serious: No
  Sender: FDA-Public Use
  Company Number: US-PFIZER INC-2010067084

PATIENT
  Age: 70 Year
  Sex: Male
  Weight: 108.84 kg

DRUGS (18)
  1. BLINDED CELECOXIB [Suspect]
     Indication: OSTEOARTHRITIS
     Dosage: UNK, 3x/day
     Route: 048
     Dates: start: 20070420
  2. BLINDED IBUPROFEN [Suspect]
     Indication: OSTEOARTHRITIS
     Dosage: UNK, 3x/day
     Route: 048
     Dates: start: 20070420
  3. BLINDED IBUPROFEN [Suspect]
     Indication: OSTEOARTHRITIS
     Dosage: UNK, 3x/day
     Route: 048
     Dates: start: 20070420
  4. BLINDED NAPROXEN [Suspect]
     Indication: OSTEOARTHRITIS
     Dosage: UNK, 3x/day
     Route: 048
     Dates: start: 20070420
  5. BLINDED NAPROXEN [Suspect]
     Indication: OSTEOARTHRITIS
     Dosage: UNK, 3x/day
     Route: 048
     Dates: start: 20070420
  6. BLINDED NO SUBJECT DRUG [Suspect]
     Indication: OSTEOARTHRITIS
     Dosage: UNK, 3x/day
     Route: 048
     Dates: start: 20070420
  7. BLINDED PLACEBO [Suspect]
     Indication: OSTEOARTHRITIS
     Dosage: UNK, 3x/day
     Route: 048
     Dates: start: 20070420
  8. BLINDED CELECOXIB [Suspect]
     Indication: RHEUMATOID ARTHRITIS
  9. BLINDED IBUPROFEN [Suspect]
     Indication: RHEUMATOID ARTHRITIS
  10. BLINDED IBUPROFEN [Suspect]
     Indication: RHEUMATOID ARTHRITIS
  11. BLINDED NAPROXEN [Suspect]
     Indication: RHEUMATOID ARTHRITIS
  12. BLINDED NAPROXEN [Suspect]
     Indication: RHEUMATOID ARTHRITIS
  13. BLINDED NO SUBJECT DRUG [Suspect]
     Indication: RHEUMATOID ARTHRITIS
  14. BLINDED PLACEBO [Suspect]
     Indication: RHEUMATOID ARTHRITIS
  15. NEXIUM [Concomitant]
     Indication: PROPHYLAXIS
     Dosage: 40 mg, 1x/day
     Dates: start: 20070420
  16. HYZAAR [Concomitant]
     Indication: HYPERTENSION
     Dosage: 100/25 mg, daily
     Route: 048
     Dates: start: 20090731
  17. SIMVASTATIN [Concomitant]
     Indication: HYPERLIPIDAEMIA
     Dosage: 80 mg, 1x/day
     Route: 048
     Dates: start: 20090731
  18. ASPIRIN [Concomitant]
     Indication: PROPHYLAXIS
     Dosage: 325 mg, 1x/day
     Route: 048
     Dates: start: 20070325

REACTIONS (1)
  - Atrial fibrillation [Recovered/Resolved]
